FAERS Safety Report 25456548 (Version 1)
Quarter: 2025Q2

REPORT INFORMATION
  Report Type: Spontaneous
  Country: PL (occurrence: PL)
  Receive Date: 20250619
  Receipt Date: 20250619
  Transmission Date: 20250716
  Serious: Yes (Hospitalization, Other)
  Sender: GILEAD
  Company Number: PL-GILEAD-2025-0714903

PATIENT
  Age: 61 Year
  Sex: Female

DRUGS (1)
  1. YESCARTA [Suspect]
     Active Substance: AXICABTAGENE CILOLEUCEL
     Indication: High-grade B-cell lymphoma
     Route: 065
     Dates: start: 20200127

REACTIONS (7)
  - Pancytopenia [Unknown]
  - Cytokine release syndrome [Unknown]
  - Immune effector cell-associated neurotoxicity syndrome [Unknown]
  - Agranulocytosis [Unknown]
  - Thrombocytopenia [Unknown]
  - Hypogammaglobulinaemia [Unknown]
  - Anaemia [Unknown]
